FAERS Safety Report 4441308-3 (Version None)
Quarter: 2004Q3

REPORT INFORMATION
  Report Type: 
  Country: None (occurrence: None)
  Receive Date: 20040728
  Receipt Date: 20040416
  Transmission Date: 20050211
  Serious: No
  Sender: FDA-Public Use
  Company Number: USA040465260

PATIENT
  Age: 56 Year
  Sex: Male

DRUGS (1)
  1. STRATTERA [Suspect]
     Dosage: 25 MG AT NOON
     Dates: start: 20040416

REACTIONS (8)
  - ASTHENIA [None]
  - DEPRESSION [None]
  - DIZZINESS [None]
  - DYSURIA [None]
  - FEAR [None]
  - HYPERHIDROSIS [None]
  - MENTAL IMPAIRMENT [None]
  - TREMOR [None]
